FAERS Safety Report 9431893 (Version 1)
Quarter: 2013Q3

REPORT INFORMATION
  Report Type: Report from Study
  Country: CA (occurrence: CA)
  Receive Date: 20130731
  Receipt Date: 20130731
  Transmission Date: 20140515
  Serious: Yes (Death)
  Sender: FDA-Public Use
  Company Number: PHHY2013CA080734

PATIENT
  Sex: Male

DRUGS (1)
  1. SANDOSTATIN LAR [Suspect]
     Indication: METASTATIC CARCINOMA OF THE BLADDER
     Dosage: 10 MG, EVERY 4 WEEKS
     Route: 030
     Dates: start: 20130603

REACTIONS (1)
  - Death [Fatal]
